FAERS Safety Report 25499914 (Version 2)
Quarter: 2025Q3

REPORT INFORMATION
  Report Type: Other
  Country: AU (occurrence: AU)
  Receive Date: 20250701
  Receipt Date: 20250710
  Transmission Date: 20251021
  Serious: Yes (Death)
  Sender: ALVOGEN
  Company Number: AU-ALVOGEN-2025098235

PATIENT
  Age: 50 Year
  Sex: Male
  Weight: 89 kg

DRUGS (3)
  1. OXYCODONE [Suspect]
     Active Substance: OXYCODONE
     Indication: Suicide attempt
     Route: 048
  2. AMITRIPTYLINE [Suspect]
     Active Substance: AMITRIPTYLINE
     Indication: Suicide attempt
     Route: 048
  3. NORTRIPTYLINE [Suspect]
     Active Substance: NORTRIPTYLINE
     Indication: Suicide attempt
     Route: 048

REACTIONS (7)
  - Toxicity to various agents [Fatal]
  - Pulmonary embolism [Fatal]
  - Completed suicide [Fatal]
  - Deep vein thrombosis [Fatal]
  - Immobile [Fatal]
  - Loss of consciousness [Fatal]
  - Overdose [Fatal]
